FAERS Safety Report 22114244 (Version 1)
Quarter: 2023Q1

REPORT INFORMATION
  Report Type: Spontaneous
  Country: US (occurrence: None)
  Receive Date: 20230317
  Receipt Date: 20230317
  Transmission Date: 20230418
  Serious: Yes (unspecified)
  Sender: FDA-Public Use
  Company Number: None

PATIENT
  Age: 68 Year
  Sex: Female
  Weight: 71.1 kg

DRUGS (1)
  1. KETOROLAC TROMETHAMINE [Suspect]
     Active Substance: KETOROLAC TROMETHAMINE
     Indication: Cataract operation
     Dosage: FREQUENCY : EVERY 12 HOURS;?
     Route: 047
     Dates: start: 20230228, end: 20230228

REACTIONS (2)
  - Eye inflammation [None]
  - Instillation site reaction [None]

NARRATIVE: CASE EVENT DATE: 20230228
